FAERS Safety Report 15436729 (Version 1)
Quarter: 2018Q3

REPORT INFORMATION
  Report Type: Spontaneous
  Country: JP (occurrence: JP)
  Receive Date: 20180927
  Receipt Date: 20180927
  Transmission Date: 20181010
  Serious: Yes (Other)
  Sender: FDA-Public Use
  Company Number: JP-MITSUBISHI TANABE PHARMA CORPORATION-MTPC2018-0023125

PATIENT
  Age: 44 Year
  Sex: Female

DRUGS (2)
  1. RADICUT [Suspect]
     Active Substance: EDARAVONE
     Indication: BRAIN OEDEMA
     Route: 065
  2. GLYCERIN. [Concomitant]
     Active Substance: GLYCERIN
     Indication: BRAIN OEDEMA
     Route: 065

REACTIONS (1)
  - Cerebral infarction [Unknown]
